FAERS Safety Report 18339161 (Version 2)
Quarter: 2020Q4

REPORT INFORMATION
  Report Type: Spontaneous
  Country: JP (occurrence: JP)
  Receive Date: 20201002
  Receipt Date: 20201203
  Transmission Date: 20210113
  Serious: Yes (Hospitalization)
  Sender: FDA-Public Use
  Company Number: JP-BIOGEN-2020BI00930147

PATIENT
  Age: 61 Year
  Sex: Female

DRUGS (9)
  1. TECFIDERA [Suspect]
     Active Substance: DIMETHYL FUMARATE
     Indication: MULTIPLE SCLEROSIS
     Dosage: MORNING AND EVENING
     Route: 048
     Dates: start: 20200920, end: 20200922
  2. BELSOMRA [Concomitant]
     Active Substance: SUVOREXANT
     Route: 065
  3. ALOSENN [Concomitant]
     Route: 065
  4. GILENYA [Suspect]
     Active Substance: FINGOLIMOD HYDROCHLORIDE
     Indication: MULTIPLE SCLEROSIS
     Route: 065
     Dates: start: 2018, end: 20200919
  5. DIGOSIN [Concomitant]
     Active Substance: DIGOXIN
     Dosage: 0.2 G
     Route: 065
  6. CRESTOR [Concomitant]
     Active Substance: ROSUVASTATIN CALCIUM
     Dosage: EVENING
     Route: 065
  7. GLAKAY [Concomitant]
     Active Substance: MENATETRENONE
     Route: 065
  8. GASTER [Concomitant]
     Active Substance: FAMOTIDINE
     Route: 065
  9. PROMAC [Concomitant]
     Active Substance: NITROFURANTOIN
     Dosage: MORNING AND EVENING
     Route: 065

REACTIONS (8)
  - Loss of consciousness [Unknown]
  - Epilepsy [Unknown]
  - Hemiparesis [Unknown]
  - Multiple sclerosis relapse [Unknown]
  - Trigeminal neuralgia [Unknown]
  - Herpes virus infection [Unknown]
  - Drug eruption [Unknown]
  - Prescribed underdose [Unknown]

NARRATIVE: CASE EVENT DATE: 20200920
